FAERS Safety Report 9246175 (Version 3)
Quarter: 2013Q4

REPORT INFORMATION
  Report Type: Report from Study
  Country: GB (occurrence: GB)
  Receive Date: 20130422
  Receipt Date: 20131001
  Transmission Date: 20140711
  Serious: Yes (Other)
  Sender: FDA-Public Use
  Company Number: GB-ROCHE-1216383

PATIENT
  Sex: Male

DRUGS (7)
  1. RANIBIZUMAB [Suspect]
     Indication: PRODUCT USED FOR UNKNOWN INDICATION
     Route: 050
  2. METFORMIN [Concomitant]
     Route: 065
  3. CELLUVISC [Concomitant]
     Route: 065
  4. LOSARTAN [Concomitant]
  5. FINASTERIDE [Concomitant]
  6. B12 COMPLEX [Concomitant]
     Route: 065
  7. HYPROMELLOSE [Concomitant]
     Route: 065

REACTIONS (1)
  - Diabetes mellitus [Unknown]
